FAERS Safety Report 15475108 (Version 1)
Quarter: 2018Q4

REPORT INFORMATION
  Report Type: Spontaneous
  Country: US (occurrence: US)
  Receive Date: 20181008
  Receipt Date: 20181008
  Transmission Date: 20190205
  Serious: Yes (Other)
  Sender: FDA-Public Use
  Company Number: US-MYLANLABS-2018M1073879

PATIENT
  Sex: Female

DRUGS (2)
  1. FELBAMATE. [Suspect]
     Active Substance: FELBAMATE
     Indication: GENERALISED TONIC-CLONIC SEIZURE
     Dosage: UNK
  2. ONFI [Suspect]
     Active Substance: CLOBAZAM
     Indication: GENERALISED TONIC-CLONIC SEIZURE
     Dosage: UNK

REACTIONS (1)
  - Myoclonic epilepsy [Unknown]
